FAERS Safety Report 5851056-0 (Version None)
Quarter: 2008Q3

REPORT INFORMATION
  Report Type: 
  Country: None (occurrence: None)
  Receive Date: 20080818
  Receipt Date: 20080804
  Transmission Date: 20090109
  Serious: Yes (Hospitalization)
  Sender: FDA-Public Use
  Company Number: 8035924

PATIENT
  Sex: Female
  Weight: 2.36 kg

DRUGS (2)
  1. KEPPRA [Suspect]
     Indication: EPILEPSY
     Dosage: 1000 MG 2/D; TRP
     Route: 064
     Dates: start: 20070301, end: 20071206
  2. KEPPRA [Suspect]
     Indication: EPILEPSY
     Dosage: 1000 MG 2/D, TRM
     Route: 063
     Dates: start: 20071206

REACTIONS (7)
  - BLOOD PH DECREASED [None]
  - BODY TEMPERATURE DECREASED [None]
  - CONGENITAL PYELOCALIECTASIS [None]
  - DRUG EXPOSURE VIA BREAST MILK [None]
  - HYPOGLYCAEMIA NEONATAL [None]
  - MATERNAL DRUGS AFFECTING FOETUS [None]
  - SMALL FOR DATES BABY [None]
